FAERS Safety Report 11654898 (Version 1)
Quarter: 2015Q4

REPORT INFORMATION
  Report Type: Spontaneous
  Country: BR (occurrence: BR)
  Receive Date: 20151023
  Receipt Date: 20151023
  Transmission Date: 20160304
  Serious: Yes (Other)
  Sender: FDA-Public Use
  Company Number: BR-ROCHE-1649797

PATIENT
  Age: 66 Year
  Sex: Male

DRUGS (8)
  1. LUCENTIS [Suspect]
     Active Substance: RANIBIZUMAB
     Indication: CORNEAL OEDEMA
     Dosage: ONE INJECTION ON THE LEFT EYE, EVERY 3 MONTHS.
     Route: 050
     Dates: start: 2013
  2. AZOPT [Concomitant]
     Active Substance: BRINZOLAMIDE
     Dosage: DROPS
     Route: 065
  3. DIOVAN AMLO FIX [Suspect]
     Active Substance: AMLODIPINE\VALSARTAN
     Indication: HYPERTENSION
     Dosage: DOSE: 160/5MG
     Route: 048
  4. PANTOPRAZOLE [Concomitant]
     Active Substance: PANTOPRAZOLE SODIUM
     Route: 065
  5. ROXFLAN [Concomitant]
     Active Substance: AMLODIPINE BESYLATE
     Route: 065
  6. TIMOPTOL [Concomitant]
     Active Substance: TIMOLOL
     Dosage: DROPS
     Route: 065
  7. LUMIGAN [Concomitant]
     Active Substance: BIMATOPROST
     Dosage: DROP
     Route: 065
  8. SOMALGIN [Concomitant]
     Active Substance: ASPIRIN\DIHYDROXYALUMINUM AMINOACETATE ANHYDROUS\MAGNESIUM CARBONATE
     Route: 065

REACTIONS (4)
  - Pyrexia [Recovered/Resolved]
  - Peripheral swelling [Recovering/Resolving]
  - Diarrhoea [Recovered/Resolved]
  - Off label use [Unknown]

NARRATIVE: CASE EVENT DATE: 201506
